FAERS Safety Report 7517496-9 (Version None)
Quarter: 2011Q2

REPORT INFORMATION
  Report Type: 
  Country: None (occurrence: None)
  Receive Date: 20110601
  Receipt Date: 20110525
  Transmission Date: 20111010
  Serious: Yes (Hospitalization, Other)
  Sender: FDA-Public Use
  Company Number: US-US-EMD SERONO, INC.-231426J09USA

PATIENT
  Sex: Female
  Weight: 91 kg

DRUGS (6)
  1. LISINOPRIL [Concomitant]
     Indication: HYPERTENSION
     Route: 065
  2. REBIF [Suspect]
     Indication: MULTIPLE SCLEROSIS
     Route: 065
     Dates: end: 20070701
  3. LEVOTHYROXINE SODIUM [Concomitant]
     Indication: THYROID DISORDER
     Route: 065
  4. UNSPECIFIED MEDICAITON [Concomitant]
     Indication: HYPERTENSION
     Route: 065
  5. DETROL [Concomitant]
     Indication: URINARY INCONTINENCE
     Route: 065
  6. REBIF [Suspect]
     Route: 058
     Dates: start: 20090513

REACTIONS (6)
  - AORTIC VALVE INCOMPETENCE [None]
  - CEREBROVASCULAR ACCIDENT [None]
  - INTRACRANIAL ANEURYSM [None]
  - CARDIOMYOPATHY [None]
  - GALLBLADDER INJURY [None]
  - BLOOD PRESSURE INCREASED [None]
